FAERS Safety Report 20665280 (Version 3)
Quarter: 2022Q2

REPORT INFORMATION
  Report Type: Spontaneous
  Country: US (occurrence: US)
  Receive Date: 20220401
  Receipt Date: 20220614
  Transmission Date: 20220720
  Serious: No
  Sender: FDA-Public Use
  Company Number: US-BRISTOL-MYERS SQUIBB COMPANY-2022-013521

PATIENT
  Age: 66 Year
  Sex: Male

DRUGS (3)
  1. POMALYST [Suspect]
     Active Substance: POMALIDOMIDE
     Indication: Plasma cell myeloma
     Route: 048
     Dates: start: 202201, end: 20220511
  2. POMALYST [Suspect]
     Active Substance: POMALIDOMIDE
     Dosage: REDUCED HIS POMALYST DOSE TO 3 MG.
     Route: 048
     Dates: start: 202201
  3. POMALYST [Suspect]
     Active Substance: POMALIDOMIDE
     Route: 048
     Dates: start: 202201

REACTIONS (2)
  - Fatigue [Unknown]
  - White blood cell count decreased [Recovered/Resolved]
